FAERS Safety Report 11634284 (Version 1)
Quarter: 2015Q4

REPORT INFORMATION
  Report Type: Spontaneous
  Country: US (occurrence: US)
  Receive Date: 20151015
  Receipt Date: 20151015
  Transmission Date: 20160304
  Serious: Yes (Other)
  Sender: FDA-Public Use
  Company Number: US-KADMON PHARMACEUTICALS, LLC-KAD201508-002996

PATIENT
  Age: 64 Year
  Sex: Female
  Weight: 58.97 kg

DRUGS (4)
  1. BUSPAR [Concomitant]
     Active Substance: BUSPIRONE HYDROCHLORIDE
     Indication: ANXIETY
  2. RIBASPHERE RIBAPAK [Suspect]
     Active Substance: RIBAVIRIN
     Indication: HEPATITIS C
     Route: 048
     Dates: start: 20150315, end: 20150829
  3. ZOLOFT [Concomitant]
     Active Substance: SERTRALINE HYDROCHLORIDE
     Indication: DEPRESSION
  4. SOVALDI [Suspect]
     Active Substance: SOFOSBUVIR
     Dosage: TABLET
     Dates: start: 20150315, end: 20150829

REACTIONS (4)
  - Depression [Recovered/Resolved]
  - Gingival recession [Not Recovered/Not Resolved]
  - Amaurosis fugax [Not Recovered/Not Resolved]
  - Condition aggravated [Not Recovered/Not Resolved]

NARRATIVE: CASE EVENT DATE: 20150331
